FAERS Safety Report 6680690-3 (Version None)
Quarter: 2010Q2

REPORT INFORMATION
  Report Type: 
  Country: None (occurrence: None)
  Receive Date: 20100414
  Receipt Date: 20100409
  Transmission Date: 20101027
  Serious: Yes (Other)
  Sender: FDA-Public Use
  Company Number: US-TEVA-230706USA

PATIENT
  Sex: Female

DRUGS (7)
  1. COPAXONE [Suspect]
     Indication: MULTIPLE SCLEROSIS
     Route: 058
     Dates: start: 20091101, end: 20100401
  2. MINOCYCLINE [Concomitant]
  3. CLONAZEPAM [Concomitant]
  4. MODAFINIL [Concomitant]
  5. CYCLOBENZAPRINE HYDROCHLORIDE [Concomitant]
  6. VALACYCLOVIR [Concomitant]
  7. PREGABALIN [Concomitant]

REACTIONS (1)
  - ACUTE HEPATIC FAILURE [None]
